FAERS Safety Report 9796308 (Version 2)
Quarter: 2014Q1

REPORT INFORMATION
  Report Type: Spontaneous
  Country: GB (occurrence: GB)
  Receive Date: 20140103
  Receipt Date: 20140103
  Transmission Date: 20141002
  Serious: Yes (Other)
  Sender: FDA-Public Use
  Company Number: GB-WATSON-2013-15729

PATIENT
  Age: 52 Year
  Sex: Male

DRUGS (1)
  1. DOXAZOSIN (UNKNOWN) [Suspect]
     Indication: HYPERTENSION
     Dosage: 4 MG, BID
     Route: 065

REACTIONS (1)
  - Drug ineffective [Unknown]
